FAERS Safety Report 8901380 (Version 1)
Quarter: 2012Q4

REPORT INFORMATION
  Report Type: Report from Study
  Country: CA (occurrence: CA)
  Receive Date: 20121109
  Receipt Date: 20121109
  Transmission Date: 20130627
  Serious: Yes (Other)
  Sender: FDA-Public Use
  Company Number: CA-JNJFOC-20121100274

PATIENT
  Sex: Female
  Weight: 80 kg

DRUGS (9)
  1. REMICADE [Suspect]
     Indication: RHEUMATOID ARTHRITIS
     Dosage: The patient had 58 infliximab infusions
     Route: 042
     Dates: start: 20040714
  2. METHOTREXATE [Concomitant]
     Route: 065
  3. MELOXICAM [Concomitant]
     Route: 065
  4. CIPROLEX [Concomitant]
     Route: 065
  5. ZOPICLONE [Concomitant]
     Route: 065
  6. NEXIUM [Concomitant]
     Route: 065
  7. CRESTOR [Concomitant]
     Route: 065
  8. ADALAT [Concomitant]
     Route: 065
  9. FOLIC ACID [Concomitant]
     Route: 065

REACTIONS (2)
  - Cataract [Not Recovered/Not Resolved]
  - Macular degeneration [Not Recovered/Not Resolved]
